FAERS Safety Report 7486534-4 (Version None)
Quarter: 2011Q2

REPORT INFORMATION
  Report Type: 
  Country: None (occurrence: None)
  Receive Date: 20110517
  Receipt Date: 20110503
  Transmission Date: 20111010
  Serious: Yes (Other)
  Sender: FDA-Public Use
  Company Number: CA-JNJFOC-20110503522

PATIENT
  Sex: Female
  Weight: 72 kg

DRUGS (3)
  1. MESALAMINE [Concomitant]
  2. AZATHIOPRINE [Concomitant]
  3. REMICADE [Suspect]
     Indication: COLITIS ULCERATIVE
     Route: 042

REACTIONS (2)
  - NAUSEA [None]
  - SYNCOPE [None]
